FAERS Safety Report 14692242 (Version 1)
Quarter: 2018Q1

REPORT INFORMATION
  Report Type: Spontaneous
  Country: US (occurrence: US)
  Receive Date: 20180329
  Receipt Date: 20180329
  Transmission Date: 20180509
  Serious: No
  Sender: FDA-Public Use
  Company Number: US-ASTRAZENECA-1998AU05685

PATIENT
  Age: 21773 Day
  Sex: Female
  Weight: 83.9 kg

DRUGS (26)
  1. AFRIN NASAL INHALER [Concomitant]
     Indication: RHINITIS ALLERGIC
     Route: 065
  2. DARVOCET [Concomitant]
     Active Substance: ACETAMINOPHEN\PROPOXYPHENE HYDROCHLORIDE
     Route: 065
  3. PULMICORT TURBUHALER [Suspect]
     Active Substance: BUDESONIDE
     Indication: ASTHMA
     Route: 055
  4. HYDROCODONE [Concomitant]
     Active Substance: HYDROCODONE
     Indication: PAIN
     Dosage: 5-325 MG ONE BY MOUTH EVERY DAY EVERY 12 HOURS AS NEEDED
     Route: 048
     Dates: start: 2011
  5. LORATADINE. [Concomitant]
     Active Substance: LORATADINE
     Indication: MULTIPLE ALLERGIES
     Route: 048
     Dates: start: 2015
  6. SYMBICORT [Suspect]
     Active Substance: BUDESONIDE\FORMOTEROL FUMARATE DIHYDRATE
     Indication: ASTHMA
     Dosage: 160/4.5 MCG, TWO INHALATIONS TWO TIMES A DAY
     Route: 055
     Dates: start: 20170101
  7. SYMBICORT [Suspect]
     Active Substance: BUDESONIDE\FORMOTEROL FUMARATE DIHYDRATE
     Indication: ASTHMA
     Dosage: 160/4.5 MCG, TWO INHALATIONS TWO TIMES A DAY
     Route: 055
     Dates: start: 20180101
  8. CLARTIN [Concomitant]
     Dosage: DOSE: 10 MG TOTAL DAILY DOSE: 10 MG
     Route: 065
  9. ENDOMETHASON [Concomitant]
     Active Substance: DEXAMETHASONE\HYDROCORTISONE ACETATE\PARAFORMALDEHYDE
     Route: 065
  10. SINGULAIR [Concomitant]
     Active Substance: MONTELUKAST SODIUM
     Route: 065
  11. LEVOTHYROXINE. [Concomitant]
     Active Substance: LEVOTHYROXINE
     Indication: HYPOTHYROIDISM
     Route: 048
     Dates: start: 2005
  12. LOSARTAN. [Concomitant]
     Active Substance: LOSARTAN
     Indication: HYPERTENSION
     Route: 048
     Dates: start: 2016
  13. EPIPEN [Concomitant]
     Active Substance: EPINEPHRINE
     Indication: ARTHROPOD STING
     Dosage: 0.3MG AS REQUIRED
     Route: 058
     Dates: start: 1979
  14. ATORVASTATIN [Concomitant]
     Active Substance: ATORVASTATIN
     Indication: BLOOD CHOLESTEROL ABNORMAL
     Route: 048
     Dates: start: 2017
  15. OMEPRAZOLE. [Suspect]
     Active Substance: OMEPRAZOLE
     Indication: GASTROOESOPHAGEAL REFLUX DISEASE
     Route: 048
     Dates: start: 2013
  16. PROAIR HFA [Concomitant]
     Active Substance: ALBUTEROL SULFATE
     Indication: ASTHMA
     Dosage: 2 INHALATIONS AS NEEDED EVERY 6 HOURS
     Route: 055
     Dates: start: 2012
  17. SYMBICORT [Suspect]
     Active Substance: BUDESONIDE\FORMOTEROL FUMARATE DIHYDRATE
     Indication: ASTHMA
     Dosage: 160/4.5 MCG, TWO INHALATIONS TWO TIMES A DAY
     Route: 055
     Dates: start: 1998, end: 2002
  18. MEDROXYPROGESTERONE [Concomitant]
     Active Substance: MEDROXYPROGESTERONE
     Route: 065
  19. SULFASALAZINE. [Concomitant]
     Active Substance: SULFASALAZINE
     Route: 065
  20. CELEBREX [Concomitant]
     Active Substance: CELECOXIB
     Indication: ARTHRITIS
     Route: 048
     Dates: start: 1989
  21. COZAAR [Concomitant]
     Active Substance: LOSARTAN POTASSIUM
     Indication: HYPERTENSION
     Route: 065
  22. FLUTICASONE. [Concomitant]
     Active Substance: FLUTICASONE
     Indication: MULTIPLE ALLERGIES
     Dosage: 2 INHALATIONS EACH NOSTRIL DAILY (50 MCG DAILY)
     Route: 055
     Dates: start: 2015
  23. MONTELUKAST [Concomitant]
     Active Substance: MONTELUKAST SODIUM
     Indication: ASTHMA
     Route: 048
     Dates: start: 2015
  24. RHINOCORT [Suspect]
     Active Substance: BUDESONIDE
     Indication: RHINITIS ALLERGIC
     Dosage: 128 MCG (DAILY), 2 INHALATIONS PER NOSTRIL QD
     Route: 045
     Dates: start: 19970801
  25. PREMARIN [Concomitant]
     Active Substance: ESTROGENS, CONJUGATED
     Route: 065
  26. AMLODIPINE [Concomitant]
     Active Substance: AMLODIPINE BESYLATE
     Indication: HYPERTENSION
     Route: 048
     Dates: start: 2012

REACTIONS (7)
  - Nausea [Unknown]
  - Dry eye [Unknown]
  - Hyperthyroidism [Unknown]
  - Sinus congestion [Not Recovered/Not Resolved]
  - Drug dose omission [Unknown]
  - Dizziness [Unknown]
  - Hypersensitivity [Unknown]

NARRATIVE: CASE EVENT DATE: 19980824
